FAERS Safety Report 6957395-4 (Version None)
Quarter: 2010Q3

REPORT INFORMATION
  Report Type: 
  Country: None (occurrence: None)
  Receive Date: 20100831
  Receipt Date: 20100826
  Transmission Date: 20110219
  Serious: Yes (Death)
  Sender: FDA-Public Use
  Company Number: PHHO2010BR12694

PATIENT
  Sex: Male
  Weight: 111 kg

DRUGS (1)
  1. CERTICAN [Suspect]
     Indication: LIVER TRANSPLANT
     Dosage: 2MG/DAY
     Route: 048
     Dates: start: 20100116, end: 20100117

REACTIONS (5)
  - ALCOHOLISM [None]
  - DIFFUSE ALVEOLAR DAMAGE [None]
  - HEPATIC ARTERY THROMBOSIS [None]
  - HEPATIC CIRRHOSIS [None]
  - POST PROCEDURAL COMPLICATION [None]
